FAERS Safety Report 9690529 (Version 1)
Quarter: 2013Q4

REPORT INFORMATION
  Report Type: Spontaneous
  Country: GB (occurrence: None)
  Receive Date: 20131113
  Receipt Date: 20131113
  Transmission Date: 20140711
  Serious: Yes (Death)
  Sender: FDA-Public Use
  Company Number: GB-013530

PATIENT
  Age: 70 Year
  Sex: Male

DRUGS (1)
  1. PICOLAX/06440801/(PICOLAX) (NOT SPECIFIED) [Suspect]
     Indication: PRODUCT USED FOR UNKNOWN INDICATION
     Dosage: TWO DOSES ORALLY

REACTIONS (1)
  - Death [None]
